FAERS Safety Report 5025344-4 (Version None)
Quarter: 2006Q2

REPORT INFORMATION
  Report Type: 
  Country: None (occurrence: None)
  Receive Date: 20060426
  Receipt Date: 20060113
  Transmission Date: 20061013
  Serious: Yes (Other)
  Sender: FDA-Public Use
  Company Number: 2006008885

PATIENT
  Age: 43 Year
  Sex: Male
  Weight: 77.1115 kg

DRUGS (9)
  1. LYRICA [Suspect]
     Indication: NEUROPATHY
     Dosage: 300 MG (1 D), ORAL
     Route: 048
     Dates: start: 20060111
  2. INVIRASE [Concomitant]
  3. IBUPROFEN [Concomitant]
  4. REYATAZ [Concomitant]
  5. TRUCADA (EMTRICITABINE, TENOFOVIR DISOPROXIL FUMARATE) [Concomitant]
  6. NIACIN [Concomitant]
  7. MULTIVITAMIN [Concomitant]
  8. VITAMIN B12 [Concomitant]
  9. HERBAL PREPARATION (HERBAL PREPARATION) [Concomitant]

REACTIONS (7)
  - BALANCE DISORDER [None]
  - DISTURBANCE IN ATTENTION [None]
  - DIZZINESS [None]
  - DYSGRAPHIA [None]
  - FEELING ABNORMAL [None]
  - NAUSEA [None]
  - VISION BLURRED [None]
